FAERS Safety Report 12592063 (Version 1)
Quarter: 2016Q3

REPORT INFORMATION
  Report Type: Spontaneous
  Country: US (occurrence: None)
  Receive Date: 20160725
  Receipt Date: 20160725
  Transmission Date: 20161109
  Serious: Yes (Disabling)
  Sender: FDA-Public Use
  Company Number: None

PATIENT
  Age: 44 Year
  Sex: Female
  Weight: 49.9 kg

DRUGS (10)
  1. AMPHETAMINE ER, 15 MG ACTAVIS [Suspect]
     Active Substance: AMPHETAMINE ASPARTATE\AMPHETAMINE SULFATE\DEXTROAMPHETAMINE SACCHARATE\DEXTROAMPHETAMINE SULFATE
     Indication: ATTENTION DEFICIT/HYPERACTIVITY DISORDER
     Dosage: 30 CAPSULE(S)  IN THE MORNING  TAKEN BY MOUTH
     Route: 048
  2. FOLIC ACID. [Concomitant]
     Active Substance: FOLIC ACID
  3. TYLENOL [Concomitant]
     Active Substance: ACETAMINOPHEN
  4. PLAQUENEL [Concomitant]
  5. SUDAFED [Concomitant]
     Active Substance: PSEUDOEPHEDRINE HYDROCHLORIDE
  6. ADDERRAL [Concomitant]
  7. TOPAMAX [Concomitant]
     Active Substance: TOPIRAMATE
  8. ANITHISTAMINE [Concomitant]
  9. WELLBUTRIN [Concomitant]
     Active Substance: BUPROPION HYDROCHLORIDE
  10. METHETREXATE [Concomitant]

REACTIONS (1)
  - Seizure [None]

NARRATIVE: CASE EVENT DATE: 20160407
